FAERS Safety Report 8923676 (Version 1)
Quarter: 2012Q4

REPORT INFORMATION
  Report Type: 
  Country: US (occurrence: None)
  Receive Date: 20121109
  Receipt Date: 20121109
  Transmission Date: 20130627
  Serious: Yes (Other)
  Sender: FDA-Public Use
  Company Number: 2011S1000661

PATIENT
  Age: 52 Year
  Sex: Male
  Weight: 147.3 kg

DRUGS (2)
  1. CUBICIN [Suspect]
     Indication: METHICILLIN-RESISTANT STAPHYLOCOCCAL AUREUS INFECTION
     Dosage: 5.98 MG/KG;     ;U
  2. STATIN [Concomitant]

REACTIONS (2)
  - Blood creatine phosphokinase increased [None]
  - Hypotension [None]
